FAERS Safety Report 16312933 (Version 1)
Quarter: 2019Q2

REPORT INFORMATION
  Report Type: Spontaneous
  Country: IT (occurrence: IT)
  Receive Date: 20190515
  Receipt Date: 20190515
  Transmission Date: 20190711
  Serious: Yes (Other)
  Sender: FDA-Public Use
  Company Number: IT-ACCORD-127583

PATIENT
  Age: 65 Year
  Sex: Male

DRUGS (4)
  1. ETOPOSIDE. [Suspect]
     Active Substance: ETOPOSIDE
     Indication: B-CELL LYMPHOMA
     Route: 041
     Dates: start: 20190128, end: 20190129
  2. ENDOXAN BAXTER [Suspect]
     Active Substance: CYCLOPHOSPHAMIDE
     Indication: B-CELL LYMPHOMA
     Route: 042
     Dates: start: 20190128, end: 20190129
  3. VINCRISTINE/VINCRISTINE SULFATE [Suspect]
     Active Substance: VINCRISTINE
     Indication: B-CELL LYMPHOMA
     Route: 042
     Dates: start: 20190128, end: 20190129
  4. MYOCET [Suspect]
     Active Substance: DOXORUBICIN
     Indication: B-CELL LYMPHOMA
     Dates: start: 20190128, end: 20190129

REACTIONS (2)
  - Pancytopenia [Unknown]
  - Sepsis [Unknown]

NARRATIVE: CASE EVENT DATE: 20190204
